FAERS Safety Report 8588693-9 (Version None)
Quarter: 2012Q3

REPORT INFORMATION
  Report Type: 
  Country: None (occurrence: None)
  Receive Date: 20120803
  Receipt Date: 20120803
  Transmission Date: 20120928
  Serious: Yes (Hospitalization)
  Sender: FDA-Public Use
  Company Number: None

PATIENT
  Sex: Male
  Weight: 96.6 kg

DRUGS (2)
  1. CISPLATIN [Suspect]
     Dosage: 65 MG
     Dates: end: 20120704
  2. VINORELBINE TARTRATE [Suspect]
     Dosage: 65 MG
     Dates: end: 20120704

REACTIONS (4)
  - BLOOD PRESSURE DECREASED [None]
  - OEDEMA PERIPHERAL [None]
  - PAIN IN EXTREMITY [None]
  - DYSSTASIA [None]
